FAERS Safety Report 8531154-3 (Version None)
Quarter: 2012Q3

REPORT INFORMATION
  Report Type: 
  Country: None (occurrence: None)
  Receive Date: 20120723
  Receipt Date: 20120711
  Transmission Date: 20120928
  Serious: Yes (Hospitalization)
  Sender: FDA-Public Use
  Company Number: JP-VERTEX PHARMACEUTICALS INC.-AE-2012-010267

PATIENT
  Age: 51 Year
  Sex: Male

DRUGS (8)
  1. REBAMIPIDE [Concomitant]
     Route: 048
     Dates: start: 20120529
  2. REBETOL [Concomitant]
     Indication: HEPATITIS C
     Route: 048
     Dates: start: 20120529
  3. TELAVIC (TELAPREVIR) [Suspect]
     Indication: HEPATITIS C
     Route: 048
     Dates: start: 20120529, end: 20120703
  4. ZOLPIDEM [Concomitant]
     Route: 048
  5. LOXONIN [Concomitant]
     Route: 048
     Dates: start: 20120529
  6. TELAVIC (TELAPREVIR) [Suspect]
     Route: 048
     Dates: start: 20120704
  7. PEG-INTRON [Concomitant]
     Indication: HEPATITIS C
     Route: 058
     Dates: start: 20120529
  8. AMLODIPINE [Concomitant]
     Route: 048

REACTIONS (2)
  - DEPRESSION [None]
  - MALAISE [None]
